FAERS Safety Report 8050735-7 (Version None)
Quarter: 2012Q1

REPORT INFORMATION
  Report Type: 
  Country: None (occurrence: None)
  Receive Date: 20120117
  Receipt Date: 20120117
  Transmission Date: 20120608
  Serious: Yes (Life-Threatening)
  Sender: FDA-Public Use
  Company Number: None

PATIENT
  Age: 9 Year
  Sex: Female
  Weight: 32.205 kg

DRUGS (1)
  1. SINGULAIR [Suspect]
     Indication: ASTHMA
     Dosage: 5MG
     Route: 048
     Dates: start: 20111222, end: 20120105

REACTIONS (11)
  - SCRATCH [None]
  - CRYING [None]
  - AGGRESSION [None]
  - SUICIDAL IDEATION [None]
  - FALL [None]
  - ANGER [None]
  - SCREAMING [None]
  - EMOTIONAL DISORDER [None]
  - INTENTIONAL SELF-INJURY [None]
  - DEPRESSION [None]
  - CONTUSION [None]
